FAERS Safety Report 6222375-3 (Version None)
Quarter: 2009Q2

REPORT INFORMATION
  Report Type: 
  Country: None (occurrence: None)
  Receive Date: 20090608
  Receipt Date: 20090522
  Transmission Date: 20091009
  Serious: Yes (Disabling)
  Sender: FDA-Public Use
  Company Number: FR-GENENTECH-283870

PATIENT
  Sex: Female

DRUGS (6)
  1. AVASTIN [Suspect]
     Indication: ADENOCARCINOMA
     Dosage: 370 MG, DAYS 1+15
     Route: 042
     Dates: start: 20081216
  2. ELOXATIN [Suspect]
     Indication: ADENOCARCINOMA
     Dosage: 154 MG, UNK
     Route: 042
     Dates: start: 20081216, end: 20090310
  3. CAMPTOSAR [Concomitant]
     Indication: CHEMOTHERAPY
     Dosage: 190 MG/M2, UNK
     Dates: start: 20081202
  4. FLUOROURACIL [Concomitant]
     Indication: CHEMOTHERAPY
     Dosage: 400 MG/M2, UNK
     Dates: start: 20081202
  5. FLUOROURACIL [Concomitant]
     Dosage: 1200 MG/M2, UNK
     Dates: start: 20081202
  6. FOLINIC ACID [Concomitant]
     Indication: CHEMOTHERAPY
     Dosage: UNK
     Dates: start: 20081202

REACTIONS (3)
  - NEUROPATHY PERIPHERAL [None]
  - PARAESTHESIA [None]
  - SOMNOLENCE [None]
